FAERS Safety Report 24163805 (Version 1)
Quarter: 2024Q3

REPORT INFORMATION
  Report Type: Report from Study
  Country: US (occurrence: None)
  Receive Date: 20240801
  Receipt Date: 20240801
  Transmission Date: 20241017
  Serious: Yes (Other)
  Sender: ASTRAZENECA
  Company Number: 2024A170468

PATIENT

DRUGS (1)
  1. KOSELUGO [Suspect]
     Active Substance: SELUMETINIB
     Route: 048

REACTIONS (5)
  - Cellulitis [Unknown]
  - Cardiotoxicity [Unknown]
  - Ocular toxicity [Unknown]
  - Hepatotoxicity [Unknown]
  - Toxicity to various agents [Unknown]
